FAERS Safety Report 9542892 (Version 2)
Quarter: 2013Q4

REPORT INFORMATION
  Report Type: Spontaneous
  Country: US (occurrence: US)
  Receive Date: 20130923
  Receipt Date: 20131018
  Transmission Date: 20140711
  Serious: No
  Sender: FDA-Public Use
  Company Number: US-PFIZER INC-2013272658

PATIENT
  Age: 47 Year
  Sex: Male
  Weight: 113.38 kg

DRUGS (11)
  1. LYRICA [Suspect]
     Indication: DIABETIC NEUROPATHY
     Dosage: 75 MG, 3X/DAY
     Route: 048
  2. LOSARTAN [Concomitant]
     Indication: HYPERTENSION
     Dosage: 100 MG, UNK
  3. ALLOPURINOL [Concomitant]
     Indication: GOUT
     Dosage: 300 MG, UNK
  4. COLCRYS [Concomitant]
     Indication: GOUT
     Dosage: 0.6 MG, UNK
  5. LANTUS SOLOSTAR [Concomitant]
     Dosage: 100 UNITS, UNK
  6. FOLIC ACID [Concomitant]
     Dosage: 1 MG, UNK
  7. NOVOLOG FLEXPEN [Concomitant]
     Dosage: UNK
  8. CRESTOR [Concomitant]
     Indication: BLOOD CHOLESTEROL INCREASED
     Dosage: 40 MG, UNK
  9. LEVOTHYROXINE [Concomitant]
     Dosage: 150 UG, UNK
  10. CITALOPRAM [Concomitant]
     Dosage: 20 MG, 1X/DAY
  11. IRON [Concomitant]
     Dosage: UNK

REACTIONS (2)
  - Gait disturbance [Recovered/Resolved]
  - Pain [Recovered/Resolved]
